FAERS Safety Report 12941471 (Version 2)
Quarter: 2017Q1

REPORT INFORMATION
  Report Type: Report from Study
  Country: JP (occurrence: JP)
  Receive Date: 20161115
  Receipt Date: 20170206
  Transmission Date: 20170428
  Serious: Yes (Life-Threatening, Hospitalization)
  Sender: FDA-Public Use
  Company Number: JP-ACTELION-A-CH2016-145152

PATIENT
  Age: 26 Year
  Sex: Male

DRUGS (11)
  1. OPSUMIT [Suspect]
     Active Substance: MACITENTAN
     Indication: PULMONARY ARTERIAL HYPERTENSION
     Dosage: 10 MG, QD
     Route: 048
     Dates: start: 20151021, end: 20160705
  2. OXYGEN. [Concomitant]
     Active Substance: OXYGEN
  3. TRACLEER [Concomitant]
     Active Substance: BOSENTAN
     Indication: PULMONARY ARTERIAL HYPERTENSION
     Dosage: 62.5 MG, BID
  4. AKINETON [Concomitant]
     Active Substance: BIPERIDEN HYDROCHLORIDE
  5. ADONA [Concomitant]
     Active Substance: CARBAZOCHROME SODIUM SULFONATE
  6. TRANSAMIN [Concomitant]
     Active Substance: TRANEXAMIC ACID
  7. ZYLORIC [Concomitant]
     Active Substance: ALLOPURINOL
  8. RISPERDAL [Concomitant]
     Active Substance: RISPERIDONE
  9. TANATRIL [Concomitant]
     Active Substance: IMIDAPRIL
  10. ERYTHROCIN [Concomitant]
     Active Substance: ERYTHROMYCIN LACTOBIONATE
  11. FERROMIA [Concomitant]
     Active Substance: FERROUS CITRATE

REACTIONS (2)
  - Tracheostomy [Recovered/Resolved]
  - Pulmonary haemorrhage [Recovering/Resolving]

NARRATIVE: CASE EVENT DATE: 20160530
